FAERS Safety Report 8318572 (Version 5)
Quarter: 2013Q1

REPORT INFORMATION
  Report Type: Spontaneous
  Country: BR (occurrence: BR)
  Receive Date: 20120103
  Receipt Date: 20130204
  Transmission Date: 20140127
  Serious: Yes (Other)
  Sender: FDA-Public Use
  Company Number: BR-PFIZER INC-2010150399

PATIENT
  Age: 30 Year
  Sex: Female
  Weight: 92 kg

DRUGS (10)
  1. GEODON [Suspect]
     Indication: SCHIZOAFFECTIVE DISORDER BIPOLAR TYPE
     Dosage: 40 MG, 1X/DAY
     Route: 048
  2. GEODON [Suspect]
     Dosage: 80 MG, 1X/DAY
     Route: 048
     Dates: start: 2007
  3. GEODON [Suspect]
     Dosage: 40 MG, 1X/DAY
     Route: 048
  4. SIBUTRAMINE [Suspect]
     Dosage: UNK
  5. SAPHRIS [Suspect]
     Dosage: UNK
  6. LAMOTRIGINE [Concomitant]
     Indication: AFFECTIVE DISORDER
     Dosage: 125 MG, TWO TABLETS AND HALF DAILY
     Dates: start: 2005
  7. FLUOXETINE [Suspect]
     Indication: DEPRESSION
     Dosage: 20 MG, ONE TABLET AND HALF DAILY
     Dates: start: 201108
  8. TOPIRAMATE [Concomitant]
     Dosage: UNK
  9. LEXOTAN [Concomitant]
     Indication: DYSPHAGIA
     Dosage: UNK
  10. ZETRON [Concomitant]
     Indication: DEPRESSION
     Dosage: 150 MG, 1X/DAY
     Dates: start: 2008

REACTIONS (16)
  - Parkinson^s disease [Unknown]
  - Dysphagia [Unknown]
  - Schizoaffective disorder [Unknown]
  - Hypothyroidism [Unknown]
  - Autoimmune thyroiditis [Unknown]
  - Dysplasia [Unknown]
  - Depression [Unknown]
  - Drug dependence [Unknown]
  - Hypoglycaemia [Unknown]
  - Vitamin D decreased [Unknown]
  - Malaise [Unknown]
  - Metabolic disorder [Unknown]
  - Appetite disorder [Unknown]
  - Weight increased [Recovered/Resolved]
  - Weight decreased [Unknown]
  - Feeling abnormal [Unknown]
